FAERS Safety Report 24137647 (Version 1)
Quarter: 2024Q3

REPORT INFORMATION
  Report Type: Spontaneous
  Country: JP (occurrence: JP)
  Receive Date: 20240725
  Receipt Date: 20240725
  Transmission Date: 20241017
  Serious: Yes (Other)
  Sender: INSUD PHARMA
  Company Number: JP-INSUD PHARMA-2407JP05879

PATIENT

DRUGS (1)
  1. GUANFACINE [Suspect]
     Active Substance: GUANFACINE
     Indication: Attention deficit hyperactivity disorder
     Dosage: TOOK 50 TABLETS OF GUANFACINE 3 MG
     Route: 048

REACTIONS (7)
  - Electrocardiogram QT prolonged [Recovered/Resolved]
  - Electrocardiogram T wave amplitude increased [Recovered/Resolved]
  - Toxicity to various agents [Unknown]
  - Somnolence [Unknown]
  - Bradycardia [Unknown]
  - Syncope [Unknown]
  - Intentional overdose [Unknown]
